FAERS Safety Report 8732400 (Version 2)
Quarter: 2012Q4

REPORT INFORMATION
  Report Type: Report from Study
  Country: US (occurrence: US)
  Receive Date: 20120820
  Receipt Date: 20120909
  Transmission Date: 20130627
  Serious: Yes (Death)
  Sender: FDA-Public Use
  Company Number: US-ABBOTT-12P-163-0969315-00

PATIENT
  Age: 92 Year
  Sex: Male

DRUGS (1)
  1. LUPRON DEPOT 30 MG [Suspect]
     Indication: PROSTATE CANCER
     Dates: start: 20060517, end: 20110201

REACTIONS (1)
  - Death [Fatal]
